FAERS Safety Report 20044957 (Version 2)
Quarter: 2023Q2

REPORT INFORMATION
  Report Type: Report from Study
  Country: US (occurrence: US)
  Receive Date: 20211108
  Receipt Date: 20230501
  Transmission Date: 20230721
  Serious: Yes (Other)
  Sender: FDA-Public Use
  Company Number: US-SA-SAC20210422001146

PATIENT
  Age: 25 Year
  Sex: Male

DRUGS (3)
  1. IMIGLUCERASE [Suspect]
     Active Substance: IMIGLUCERASE
     Indication: Gaucher^s disease
     Dosage: 2800 IU, QOW
     Route: 042
     Dates: start: 19990817
  2. IMIGLUCERASE [Suspect]
     Active Substance: IMIGLUCERASE
     Dosage: UNK
     Route: 042
  3. TOPIRAMATE [Suspect]
     Active Substance: TOPIRAMATE
     Indication: Seizure
     Dosage: UNK

REACTIONS (2)
  - Seizure [Recovering/Resolving]
  - Weight decreased [Recovering/Resolving]
